FAERS Safety Report 16417583 (Version 1)
Quarter: 2019Q2

REPORT INFORMATION
  Report Type: Spontaneous
  Country: GB (occurrence: GB)
  Receive Date: 20190611
  Receipt Date: 20190611
  Transmission Date: 20190711
  Serious: Yes (Disabling)
  Sender: FDA-Public Use
  Company Number: GB-PFIZER INC-2019242351

PATIENT
  Age: 16 Year
  Sex: Male

DRUGS (5)
  1. CEFTRIAXONE SODIUM. [Suspect]
     Active Substance: CEFTRIAXONE SODIUM
     Indication: LOWER RESPIRATORY TRACT INFECTION
     Dosage: 2 G, 1X/DAY
     Route: 041
     Dates: start: 20190427, end: 20190430
  2. PARACETAMOL [Concomitant]
     Active Substance: ACETAMINOPHEN
     Dosage: 1 G, 4X/DAY (250MG/5ML)
     Route: 048
  3. CEFOTAXIME [Suspect]
     Active Substance: CEFOTAXIME SODIUM
     Indication: LOWER RESPIRATORY TRACT INFECTION
     Dosage: 6 G, 1X/DAY(8 HOURLY FOR 2 DAYS. HAD ALREADY BEEN DISCONTINUED AT THE DIAGNOSIS STAGE)
     Route: 041
     Dates: start: 20190425, end: 20190426
  4. SODIUM VALPROATE [Concomitant]
     Active Substance: VALPROATE SODIUM
     Dosage: 2 G, 1X/DAY (200MG AND 300MG TABLETS)
     Route: 048
  5. IBUPROFEN. [Concomitant]
     Active Substance: IBUPROFEN
     Dosage: 400 MG, 3X/DAY
     Route: 048

REACTIONS (1)
  - Pancytopenia [Not Recovered/Not Resolved]
